FAERS Safety Report 21768537 (Version 3)
Quarter: 2023Q1

REPORT INFORMATION
  Report Type: Spontaneous
  Country: CA (occurrence: CA)
  Receive Date: 20221222
  Receipt Date: 20230313
  Transmission Date: 20230417
  Serious: Yes (Death, Hospitalization, Other)
  Sender: FDA-Public Use
  Company Number: CA-GILEAD-2022-0610602

PATIENT
  Age: 31 Year
  Sex: Male

DRUGS (7)
  1. YESCARTA [Suspect]
     Active Substance: AXICABTAGENE CILOLEUCEL
     Indication: Diffuse large B-cell lymphoma
     Dosage: UNK
     Route: 065
     Dates: start: 20221212, end: 20221212
  2. KEPPRA [Concomitant]
     Active Substance: LEVETIRACETAM
     Indication: Seizure prophylaxis
     Dosage: 500 MG, BID
     Route: 048
     Dates: start: 20221207, end: 20221217
  3. KEPPRA [Concomitant]
     Active Substance: LEVETIRACETAM
     Indication: Immune effector cell-associated neurotoxicity syndrome
     Dosage: 750 MG, BID
     Route: 042
     Dates: start: 20221217, end: 20221219
  4. APIXABAN [Concomitant]
     Active Substance: APIXABAN
     Indication: Embolism venous
     Dosage: 5 MG, BID
  5. PIPERACILLIN SODIUM\TAZOBACTAM SODIUM [Concomitant]
     Active Substance: PIPERACILLIN SODIUM\TAZOBACTAM SODIUM
     Indication: Febrile neutropenia
     Dosage: 4.5 MG, QID
     Route: 042
     Dates: start: 20221212
  6. FLUCONAZOLE [Concomitant]
     Active Substance: FLUCONAZOLE
     Indication: Prophylaxis
     Dosage: 400 MG, QD
     Route: 048
     Dates: start: 20221212
  7. ACYCLOVIR [Concomitant]
     Active Substance: ACYCLOVIR
     Indication: Prophylaxis
     Dosage: 400 MG, BID
     Dates: start: 20221212

REACTIONS (2)
  - Immune effector cell-associated neurotoxicity syndrome [Fatal]
  - Cytokine release syndrome [Recovered/Resolved]

NARRATIVE: CASE EVENT DATE: 20221212
